FAERS Safety Report 21343780 (Version 1)
Quarter: 2022Q3

REPORT INFORMATION
  Report Type: Spontaneous
  Country: None (occurrence: CN)
  Receive Date: 20220916
  Receipt Date: 20220916
  Transmission Date: 20221027
  Serious: Yes (Hospitalization)
  Sender: FDA-Public Use
  Company Number: CN-B.Braun Medical Inc.-2132937

PATIENT
  Age: 65 Year
  Sex: Female
  Weight: 42 kg

DRUGS (1)
  1. NUTRILIPID I.V. FAT EMULSION [Suspect]
     Active Substance: SOYBEAN OIL

REACTIONS (4)
  - Chest discomfort [Recovered/Resolved]
  - Abdominal discomfort [Recovered/Resolved]
  - Muscle twitching [Recovered/Resolved]
  - Paralysis [Recovered/Resolved]
